FAERS Safety Report 13161881 (Version 2)
Quarter: 2017Q1

REPORT INFORMATION
  Report Type: Spontaneous
  Country: US (occurrence: US)
  Receive Date: 20170130
  Receipt Date: 20170202
  Transmission Date: 20170428
  Serious: Yes (Life-Threatening, Other)
  Sender: FDA-Public Use
  Company Number: US-DRREDDYS-USA/USA/17/0086660

PATIENT
  Age: 71 Year
  Sex: Female

DRUGS (8)
  1. TERBINAFINE. [Suspect]
     Active Substance: TERBINAFINE
     Route: 065
  2. CANCIDAS [Concomitant]
     Active Substance: CASPOFUNGIN ACETATE
     Indication: ENCEPHALITIS
     Dosage: ADMINISTERED INTRAVENTRICULARLY
     Route: 065
  3. SODIUM CHLORIDE 0.9 PERCENT [Concomitant]
     Indication: PRODUCT USED FOR UNKNOWN INDICATION
     Dosage: ADMINISTERED INTRAVENTRICULARLY
     Route: 065
  4. VORICONAZOLE. [Suspect]
     Active Substance: VORICONAZOLE
     Indication: ENCEPHALITIS
     Route: 042
  5. VORICONAZOLE. [Suspect]
     Active Substance: VORICONAZOLE
  6. NORMAL SALINE [Concomitant]
     Active Substance: SODIUM CHLORIDE
     Indication: PRODUCT USED FOR UNKNOWN INDICATION
     Dosage: ADMINISTERED INTRAVENTRICULARLY
     Route: 065
  7. TERBINAFINE. [Suspect]
     Active Substance: TERBINAFINE
     Indication: ENCEPHALITIS
     Route: 048
  8. TERBINAFINE. [Suspect]
     Active Substance: TERBINAFINE
     Indication: ENCEPHALITIS
     Route: 042

REACTIONS (1)
  - Treatment failure [Unknown]
